FAERS Safety Report 6330043-2 (Version None)
Quarter: 2009Q3

REPORT INFORMATION
  Report Type: 
  Country: None (occurrence: None)
  Receive Date: 20090825
  Receipt Date: 20090810
  Transmission Date: 20100115
  Serious: Yes (Other)
  Sender: FDA-Public Use
  Company Number: 235506K09USA

PATIENT
  Age: 24 Year
  Sex: Female
  Weight: 88 kg

DRUGS (6)
  1. REBIF [Suspect]
     Indication: MULTIPLE SCLEROSIS
     Dosage: 44 MCG, 3 IN 1 WEEKS, SUBCUTANEOUS
     Route: 058
     Dates: start: 20070519
  2. GABAPENTIN [Concomitant]
  3. METFORMIN HCL [Concomitant]
  4. ZOLOFT [Concomitant]
  5. PROVIGIL [Concomitant]
  6. OMEPRAZOLE [Concomitant]

REACTIONS (2)
  - HYPERTENSION [None]
  - LEFT VENTRICULAR DYSFUNCTION [None]
